FAERS Safety Report 4309430-X (Version None)
Quarter: 2004Q1

REPORT INFORMATION
  Report Type: 
  Country: None (occurrence: None)
  Receive Date: 20040301
  Receipt Date: 20040220
  Transmission Date: 20041129
  Serious: Yes (Hospitalization)
  Sender: FDA-Public Use
  Company Number: 2003116854

PATIENT
  Age: 53 Year
  Sex: Female
  Weight: 55 kg

DRUGS (5)
  1. ZOLOFT (SERTRALINE) [Suspect]
     Indication: DEPRESSION
     Dosage: 100 MG (BID), ORAL
     Route: 048
     Dates: start: 20030813, end: 20030101
  2. CITALOPRAM HYDROBROMIDE (CITALOPRAM HYDROBROMIDE) [Suspect]
     Indication: ILL-DEFINED DISORDER
  3. TIANEPTINE (TIANEPTINE) [Suspect]
     Indication: ILL-DEFINED DISORDER
  4. ALPRAZOLAM [Concomitant]
  5. ACEBUTOLOL [Concomitant]

REACTIONS (4)
  - DEAFNESS UNILATERAL [None]
  - GASTROINTESTINAL DISORDER [None]
  - TINNITUS [None]
  - VOMITING [None]
